FAERS Safety Report 4337818-X (Version None)
Quarter: 2004Q2

REPORT INFORMATION
  Report Type: 
  Country: None (occurrence: None)
  Receive Date: 20040413
  Receipt Date: 20040405
  Transmission Date: 20050107
  Serious: Yes (Hospitalization, Other)
  Sender: FDA-Public Use
  Company Number: PHNR2004AU00855

PATIENT
  Age: 56 Year
  Sex: Female

DRUGS (2)
  1. CLOZARIL [Suspect]
     Indication: SCHIZOPHRENIA
     Dosage: 12.5 - 500 MG/DAY
     Route: 048
     Dates: start: 20030819, end: 20040401
  2. CLOZARIL [Suspect]
     Dosage: 500 MG VIA GASTRIC TUBE
     Route: 051
     Dates: start: 20040404

REACTIONS (6)
  - COLOSTOMY [None]
  - DEEP VEIN THROMBOSIS [None]
  - GASTROINTESTINAL NECROSIS [None]
  - GENERAL PHYSICAL HEALTH DETERIORATION [None]
  - PYREXIA [None]
  - SUBCUTANEOUS ABSCESS [None]
